FAERS Safety Report 9017665 (Version 2)
Quarter: 2013Q1

REPORT INFORMATION
  Report Type: Spontaneous
  Country: US (occurrence: US)
  Receive Date: 20130118
  Receipt Date: 20130128
  Transmission Date: 20140127
  Serious: Yes (Hospitalization)
  Sender: FDA-Public Use
  Company Number: US-AMGEN-USASP2013002910

PATIENT
  Sex: Female
  Weight: 90.7 kg

DRUGS (2)
  1. ENBREL [Suspect]
     Indication: PSORIASIS
     Dosage: UNK
     Route: 058
     Dates: end: 20090919
  2. HUMIRA [Concomitant]
     Dosage: UNK
     Dates: start: 200910

REACTIONS (2)
  - Hypersensitivity [Unknown]
  - Rash erythematous [Unknown]
